FAERS Safety Report 7205566-4 (Version None)
Quarter: 2010Q4

REPORT INFORMATION
  Report Type: 
  Country: None (occurrence: None)
  Receive Date: 20101231
  Receipt Date: 20101223
  Transmission Date: 20110411
  Serious: Yes (Hospitalization)
  Sender: FDA-Public Use
  Company Number: GB-BRISTOL-MYERS SQUIBB COMPANY-15450422

PATIENT
  Age: 60 Year
  Sex: Male
  Weight: 61 kg

DRUGS (3)
  1. CETUXIMAB [Suspect]
     Indication: HEAD AND NECK CANCER
     Dosage: 2MG/ML IS THE STRENGTH. INITIAL DOSE IS 400MG/M2 LAST INFUSION ON 22NOV10
     Route: 042
     Dates: start: 20101122, end: 20101122
  2. ORAMORPH SR [Concomitant]
     Indication: ANALGESIC THERAPY
     Route: 048
     Dates: start: 20100101
  3. ACETAMINOPHEN [Concomitant]
     Indication: ANALGESIC THERAPY
     Route: 048
     Dates: start: 20100101

REACTIONS (4)
  - ATRIAL FIBRILLATION [None]
  - DYSPNOEA [None]
  - HYPOXIA [None]
  - LOWER RESPIRATORY TRACT INFECTION [None]
